FAERS Safety Report 5523120-7 (Version None)
Quarter: 2007Q4

REPORT INFORMATION
  Report Type: 
  Country: None (occurrence: None)
  Receive Date: 20071121
  Receipt Date: 20071114
  Transmission Date: 20080405
  Serious: Yes (Other)
  Sender: FDA-Public Use
  Company Number: US-ASTRAZENECA-2007UW26415

PATIENT
  Age: 56 Year
  Sex: Male
  Weight: 99.2 kg

DRUGS (17)
  1. SEROQUEL [Suspect]
     Indication: SCHIZOAFFECTIVE DISORDER
     Dosage: 100-400MG
     Route: 048
     Dates: start: 20060719, end: 20061102
  2. SEROQUEL [Suspect]
     Indication: POST-TRAUMATIC STRESS DISORDER
     Dosage: 100-400MG
     Route: 048
     Dates: start: 20060719, end: 20061102
  3. SEROQUEL [Suspect]
     Route: 048
     Dates: start: 20071102, end: 20071102
  4. SEROQUEL [Suspect]
     Route: 048
     Dates: start: 20071102, end: 20071102
  5. SEROQUEL [Suspect]
     Route: 048
     Dates: start: 20071101
  6. SEROQUEL [Suspect]
     Route: 048
     Dates: start: 20071101
  7. DIAZEPAM [Concomitant]
  8. CITALOPRAM [Concomitant]
  9. ATENOLOL [Concomitant]
  10. LOVASTATIN [Concomitant]
  11. BENAZEPRIL HYDROCHLORIDE [Concomitant]
  12. HYDROCHLOROTHIAZIDE [Concomitant]
  13. PRAZOSIN HCL [Concomitant]
  14. NAPROXEN [Concomitant]
  15. ASPIRIN [Concomitant]
  16. NIACIN [Concomitant]
  17. OMEPRAZOLE [Concomitant]

REACTIONS (3)
  - DIZZINESS [None]
  - FALL [None]
  - TREMOR [None]
